FAERS Safety Report 7880156-9 (Version None)
Quarter: 2011Q4

REPORT INFORMATION
  Report Type: 
  Country: None (occurrence: None)
  Receive Date: 20111101
  Receipt Date: 20111030
  Transmission Date: 20120403
  Serious: Yes (Other)
  Sender: FDA-Public Use
  Company Number: US-PFIZER INC-2011260360

PATIENT
  Sex: Male
  Weight: 83 kg

DRUGS (4)
  1. XANAX [Concomitant]
     Indication: ANXIETY
     Dosage: 4 MG, UNK
  2. LYRICA [Suspect]
     Indication: ANXIETY
     Dosage: 75 MG, 3X/DAY
     Route: 048
     Dates: start: 20110925, end: 20111027
  3. ZYPREXA [Concomitant]
     Dosage: 5 MG, UNK
  4. SYNTHROID [Concomitant]
     Indication: HYPOTHYROIDISM
     Dosage: 100 UG, UNK

REACTIONS (3)
  - HYPERSENSITIVITY [None]
  - PRURITUS [None]
  - RASH GENERALISED [None]
